FAERS Safety Report 18631066 (Version 2)
Quarter: 2020Q4

REPORT INFORMATION
  Report Type: Report from Study
  Country: US (occurrence: US)
  Receive Date: 20201217
  Receipt Date: 20201229
  Transmission Date: 20210114
  Serious: Yes (Hospitalization)
  Sender: FDA-Public Use
  Company Number: US-SEATTLE GENETICS-2020SGN05552

PATIENT
  Age: 70 Year
  Sex: Female

DRUGS (1)
  1. TUCATINIB [Suspect]
     Active Substance: TUCATINIB
     Indication: BREAST CANCER FEMALE
     Dosage: 150 MG, UNK

REACTIONS (4)
  - Pneumonia [Unknown]
  - Hospice care [Unknown]
  - Illness [Unknown]
  - Spleen disorder [Unknown]

NARRATIVE: CASE EVENT DATE: 20201214
